FAERS Safety Report 6945170-6 (Version None)
Quarter: 2010Q3

REPORT INFORMATION
  Report Type: 
  Country: None (occurrence: None)
  Receive Date: 20100827
  Receipt Date: 20100506
  Transmission Date: 20110219
  Serious: No
  Sender: FDA-Public Use
  Company Number: US-KINGPHARMUSA00001-K201000580

PATIENT
  Age: 73 Year
  Sex: Female
  Weight: 70.295 kg

DRUGS (3)
  1. FLECTOR [Suspect]
     Indication: MUSCULOSKELETAL CHEST PAIN
     Dosage: UNK PATCH
     Dates: start: 20100401, end: 20100501
  2. BEANO [Suspect]
     Dosage: UNK
     Dates: start: 20100502
  3. COUMADIN [Concomitant]

REACTIONS (4)
  - ABDOMINAL PAIN UPPER [None]
  - DIZZINESS [None]
  - DRUG INEFFECTIVE [None]
  - HYPERHIDROSIS [None]
